FAERS Safety Report 21356852 (Version 1)
Quarter: 2022Q3

REPORT INFORMATION
  Report Type: Spontaneous
  Country: US (occurrence: US)
  Receive Date: 20220920
  Receipt Date: 20220920
  Transmission Date: 20221027
  Serious: Yes (Other)
  Sender: FDA-Public Use
  Company Number: US-CELLTRION INC.-2022US014889

PATIENT

DRUGS (3)
  1. TRUXIMA [Suspect]
     Active Substance: RITUXIMAB-ABBS
     Indication: Hodgkin^s disease
     Dosage: 735 MILLIGRAM EVERY 28 DAYS
     Dates: start: 20220714
  2. TRUXIMA [Suspect]
     Active Substance: RITUXIMAB-ABBS
     Dosage: 734 MILLIGRAM EVERY 28 DAYS
     Dates: start: 20220801
  3. TRUXIMA [Suspect]
     Active Substance: RITUXIMAB-ABBS
     Dosage: 735 MILLIGRAM EVERY 28 DAYS
     Dates: start: 20220908

REACTIONS (2)
  - Hodgkin^s disease [Unknown]
  - Off label use [Unknown]
